FAERS Safety Report 20513198 (Version 1)
Quarter: 2022Q1

REPORT INFORMATION
  Report Type: Spontaneous
  Country: US (occurrence: US)
  Receive Date: 20220224
  Receipt Date: 20220224
  Transmission Date: 20220424
  Serious: No
  Sender: FDA-Public Use
  Company Number: US-AMNEAL PHARMACEUTICALS-2021-AMRX-01057

PATIENT
  Sex: Male
  Weight: 73 kg

DRUGS (2)
  1. RYTARY [Suspect]
     Active Substance: CARBIDOPA\LEVODOPA
     Indication: Product used for unknown indication
     Dosage: 2 CAPSULES, 3 /DAY, 6 HOURS APART
     Route: 048
     Dates: end: 20210315
  2. RYTARY [Suspect]
     Active Substance: CARBIDOPA\LEVODOPA
     Dosage: 2 CAPSULES, 4 /DAY, 5 HOURS APART, AT 7AM, 12PM, 5PM AND 10PM
     Route: 048
     Dates: start: 20210315

REACTIONS (1)
  - Weight decreased [Unknown]
